FAERS Safety Report 10580115 (Version 1)
Quarter: 2014Q4

REPORT INFORMATION
  Report Type: Spontaneous
  Country: IT (occurrence: IT)
  Receive Date: 20141112
  Receipt Date: 20141112
  Transmission Date: 20150529
  Serious: Yes (Hospitalization)
  Sender: FDA-Public Use
  Company Number: IT-PFIZER INC-2014307341

PATIENT
  Sex: Female

DRUGS (1)
  1. TRIATEC [Suspect]
     Active Substance: RAMIPRIL
     Indication: HYPERTENSION
     Dosage: 2 DF, DAILY
     Route: 048
     Dates: start: 20140101, end: 20140911

REACTIONS (3)
  - Hypokalaemia [Unknown]
  - Vertigo [Unknown]
  - Presyncope [Unknown]

NARRATIVE: CASE EVENT DATE: 20140911
